FAERS Safety Report 6761998-X (Version None)
Quarter: 2010Q2

REPORT INFORMATION
  Report Type: 
  Country: None (occurrence: None)
  Receive Date: 20100609
  Receipt Date: 20100528
  Transmission Date: 20101027
  Serious: Yes (Other)
  Sender: FDA-Public Use
  Company Number: PHHY2010MX34911

PATIENT
  Sex: Female

DRUGS (1)
  1. DIOVAN HCT [Suspect]
     Indication: HYPERTENSION
     Dosage: ONE TABLET PER DAY
     Dates: end: 20100401

REACTIONS (4)
  - DIZZINESS [None]
  - FATIGUE [None]
  - HAEMATOCHEZIA [None]
  - SOMNOLENCE [None]
